FAERS Safety Report 18089614 (Version 7)
Quarter: 2020Q4

REPORT INFORMATION
  Report Type: Report from Study
  Country: US (occurrence: US)
  Receive Date: 20200729
  Receipt Date: 20201009
  Transmission Date: 20210113
  Serious: Yes (Hospitalization)
  Sender: FDA-Public Use
  Company Number: NVSC2020US212219

PATIENT
  Sex: Female
  Weight: 84.82 kg

DRUGS (2)
  1. ENTRESTO [Suspect]
     Active Substance: SACUBITRIL\VALSARTAN
     Indication: CARDIAC FAILURE
     Dosage: 1 DF, BID (24/26 MG)
     Route: 048
     Dates: start: 202003
  2. LOSARTAN. [Concomitant]
     Active Substance: LOSARTAN
     Indication: PRODUCT USED FOR UNKNOWN INDICATION
     Dosage: UNK
     Route: 065

REACTIONS (7)
  - Weight abnormal [Unknown]
  - Pain [Unknown]
  - Cardiac failure congestive [Unknown]
  - Cough [Unknown]
  - Renal disorder [Unknown]
  - Feeling abnormal [Unknown]
  - Dyspnoea [Unknown]
